FAERS Safety Report 9592369 (Version 1)
Quarter: 2013Q3

REPORT INFORMATION
  Report Type: Spontaneous
  Country: US (occurrence: None)
  Receive Date: 20130920
  Receipt Date: 20130920
  Transmission Date: 20140515
  Serious: Yes (Other)
  Sender: FDA-Public Use
  Company Number: 2013AP003405

PATIENT
  Sex: Female

DRUGS (2)
  1. ENALAPRIL MALEATE [Suspect]
     Indication: CARDIAC DISORDER
     Dosage: 0.05MG/KG
  2. DIGOXIN [Suspect]
     Indication: CARDIAC DISORDER

REACTIONS (2)
  - Hypotension [None]
  - Renal failure [None]
